FAERS Safety Report 5625735-4 (Version None)
Quarter: 2008Q1

REPORT INFORMATION
  Report Type: 
  Country: None (occurrence: None)
  Receive Date: 20080207
  Receipt Date: 20080207
  Transmission Date: 20080703
  Serious: Yes (Other)
  Sender: FDA-Public Use
  Company Number: None

PATIENT
  Age: 68 Year
  Sex: Male
  Weight: 106.5953 kg

DRUGS (1)
  1. VYTORIN [Suspect]
     Dosage: 1 1 A DAY PO
     Route: 048
     Dates: start: 20060425, end: 20060425

REACTIONS (3)
  - ARTHRALGIA [None]
  - MUSCLE SWELLING [None]
  - MYALGIA [None]
